FAERS Safety Report 9554014 (Version 2)
Quarter: 2013Q4

REPORT INFORMATION
  Report Type: Spontaneous
  Country: US (occurrence: US)
  Receive Date: 20130925
  Receipt Date: 20131029
  Transmission Date: 20140711
  Serious: Yes (Other)
  Sender: FDA-Public Use
  Company Number: US-TAKEDA-2013TUS000866

PATIENT
  Sex: 0

DRUGS (2)
  1. DEXILANT [Suspect]
     Indication: GASTROOESOPHAGEAL REFLUX DISEASE
     Dosage: 60 MG, QD
     Route: 048
     Dates: start: 20130911
  2. ALL OTHER THERAPEUTIC PRODUCTS / OTHER UNKNOWN MEDICATIONS [Concomitant]

REACTIONS (2)
  - Cardiac flutter [Recovered/Resolved]
  - Palpitations [Recovered/Resolved]
